FAERS Safety Report 9969403 (Version 2)
Quarter: 2014Q1

REPORT INFORMATION
  Report Type: Spontaneous
  Country: IL (occurrence: IL)
  Receive Date: 20140306
  Receipt Date: 20140306
  Transmission Date: 20141002
  Serious: Yes (Hospitalization)
  Sender: FDA-Public Use
  Company Number: IL-BRISTOL-MYERS SQUIBB COMPANY-20250791

PATIENT
  Age: 71 Year
  Sex: Female
  Weight: 87 kg

DRUGS (8)
  1. ONGLYZA TABS 5 MG [Suspect]
     Indication: TYPE 2 DIABETES MELLITUS
     Route: 048
     Dates: start: 20130801, end: 20130826
  2. RAMIPRIL [Concomitant]
     Indication: HYPERTENSION
     Route: 048
  3. DILTIAZEM HCL [Concomitant]
     Route: 048
  4. METFORMIN HCL [Concomitant]
     Route: 048
  5. INSULIN [Concomitant]
     Route: 058
  6. ATORVASTATIN [Concomitant]
     Route: 048
  7. METOPROLOL [Concomitant]
     Route: 048
  8. IRON [Concomitant]
     Route: 048

REACTIONS (2)
  - Angioedema [Recovered/Resolved]
  - Drug eruption [Recovered/Resolved]
